FAERS Safety Report 12168277 (Version 1)
Quarter: 2016Q1

REPORT INFORMATION
  Report Type: Spontaneous
  Country: US (occurrence: None)
  Receive Date: 20160309
  Receipt Date: 20160309
  Transmission Date: 20160526
  Serious: Yes (Hospitalization)
  Sender: FDA-Public Use
  Company Number: None

PATIENT
  Age: 71 Year
  Sex: Female
  Weight: 65.77 kg

DRUGS (2)
  1. ELIQUIS [Suspect]
     Active Substance: APIXABAN
     Indication: DEEP VEIN THROMBOSIS
     Route: 048
     Dates: start: 20160224
  2. NIVOLUMAB [Concomitant]
     Active Substance: NIVOLUMAB

REACTIONS (11)
  - Hypotonia [None]
  - Oedema peripheral [None]
  - Fall [None]
  - Back pain [None]
  - Diarrhoea [None]
  - Rectal examination abnormal [None]
  - Hypoaesthesia [None]
  - Muscular weakness [None]
  - Haematoma [None]
  - Sensory disturbance [None]
  - Haematochezia [None]

NARRATIVE: CASE EVENT DATE: 20160307
